FAERS Safety Report 10065934 (Version 1)
Quarter: 2014Q1

REPORT INFORMATION
  Report Type: Spontaneous
  Country: US (occurrence: None)
  Receive Date: 20140328
  Receipt Date: 20140328
  Transmission Date: 20141002
  Serious: No
  Sender: FDA-Public Use
  Company Number: 1000052272

PATIENT
  Age: 83 Year
  Sex: Female

DRUGS (12)
  1. LINZESS (LINACLOTIDE) (290 MICROGRAM, CAPSULES) [Suspect]
     Indication: IRRITABLE BOWEL SYNDROME
     Route: 048
     Dates: start: 201311
  2. LINZESS (LINACLOTIDE) (290 MICROGRAM, CAPSULES) [Suspect]
     Indication: CONSTIPATION
     Route: 048
     Dates: start: 201311
  3. SYNTHROID (LEVOTHYROXINE SODIUM) [Concomitant]
  4. ATORVASTATIN (ATORVASTATIN) [Concomitant]
  5. PLAVIX (CLOPIDOGREL BISULFATE) (CLOPIDOGREL BISULFATE) [Concomitant]
  6. JANUVIA (SITAGLIPTIN PHOSPHATE) [Concomitant]
  7. PANTOPRAZOLE (PANTOPRAZOLE) [Concomitant]
  8. LISINOPRIL (LISINOPRIL) [Concomitant]
  9. NIASPAN (NICOTINIC ACID) [Concomitant]
  10. FOLIC ACID (FOLIC ACID) [Concomitant]
  11. VITAMIN B12 (VITAMIN B12 NOS) [Concomitant]
  12. METANX (CALCIUM MEFOLINATE W/PYRIDOXINE HYDROCHLORIDE) [Concomitant]

REACTIONS (2)
  - Drug ineffective [None]
  - Abdominal pain upper [None]
